FAERS Safety Report 7290965-5 (Version None)
Quarter: 2011Q1

REPORT INFORMATION
  Report Type: 
  Country: None (occurrence: None)
  Receive Date: 20110214
  Receipt Date: 20100706
  Transmission Date: 20110831
  Serious: Yes (Other)
  Sender: FDA-Public Use
  Company Number: US-AMGEN-KDL356913

PATIENT
  Age: 65 Year
  Sex: Female
  Weight: 73.5 kg

DRUGS (10)
  1. PROCRIT [Suspect]
     Indication: ANAEMIA
     Dosage: 40000 IU, QWK
     Route: 058
     Dates: start: 20081218, end: 20090703
  2. FEXOFENADINE HCL [Concomitant]
  3. ESTROGENS CONJUGATED [Concomitant]
  4. INTERFERON [Concomitant]
     Dosage: UNK UNK, UNK
     Dates: start: 20081101, end: 20090522
  5. RIBAVIRIN [Concomitant]
     Dosage: 1200 MG, UNK
     Dates: start: 20081101
  6. PEGINTERFERON ALFA-2A [Concomitant]
     Dosage: 180 A?G, UNK
     Dates: start: 20091204
  7. DEFERASIROX [Concomitant]
  8. COMBIVENT [Concomitant]
  9. UNSPECIFIED MEDICATION [Concomitant]
  10. FILGRASTIM [Concomitant]

REACTIONS (11)
  - PAROXYSMAL NOCTURNAL HAEMOGLOBINURIA [None]
  - BLOOD ERYTHROPOIETIN DECREASED [None]
  - HAEMOCHROMATOSIS [None]
  - APLASIA PURE RED CELL [None]
  - NEUTRALISING ANTIBODIES POSITIVE [None]
  - PANCYTOPENIA [None]
  - MYELODYSPLASTIC SYNDROME [None]
  - ANTI-ERYTHROPOIETIN ANTIBODY POSITIVE [None]
  - HEPATIC CIRRHOSIS [None]
  - BONE MARROW FAILURE [None]
  - HEPATITIS C [None]
